FAERS Safety Report 11211129 (Version 1)
Quarter: 2015Q2

REPORT INFORMATION
  Report Type: Spontaneous
  Country: FR (occurrence: FR)
  Receive Date: 20150623
  Receipt Date: 20150623
  Transmission Date: 20150821
  Serious: Yes (Hospitalization)
  Sender: FDA-Public Use
  Company Number: FR-ROCHE-1597332

PATIENT
  Age: 89 Year
  Sex: Female

DRUGS (11)
  1. PLAVIX [Concomitant]
     Active Substance: CLOPIDOGREL BISULFATE
  2. LUCENTIS [Suspect]
     Active Substance: RANIBIZUMAB
     Dosage: 10MG/ML
     Route: 050
     Dates: start: 201308
  3. COUMADINE [Concomitant]
     Active Substance: WARFARIN SODIUM
  4. LUCENTIS [Suspect]
     Active Substance: RANIBIZUMAB
     Dosage: 10MG/ML
     Route: 050
     Dates: start: 201309
  5. LUCENTIS [Suspect]
     Active Substance: RANIBIZUMAB
     Dosage: 10MG/ML
     Route: 050
     Dates: start: 20150420
  6. KARDEGIC [Concomitant]
     Active Substance: ASPIRIN LYSINE
     Route: 065
     Dates: start: 201404
  7. PERINDOPRIL [Concomitant]
     Active Substance: PERINDOPRIL
     Route: 065
     Dates: start: 201404
  8. LUCENTIS [Suspect]
     Active Substance: RANIBIZUMAB
     Indication: NEOVASCULAR AGE-RELATED MACULAR DEGENERATION
     Dosage: 10MG/ML
     Route: 050
     Dates: start: 201307
  9. LUCENTIS [Suspect]
     Active Substance: RANIBIZUMAB
     Dosage: 10MG/ML
     Route: 050
     Dates: start: 201311
  10. LUCENTIS [Suspect]
     Active Substance: RANIBIZUMAB
     Dosage: 10MG/ML
     Route: 050
     Dates: start: 20150323
  11. KEPPRA [Concomitant]
     Active Substance: LEVETIRACETAM
     Dosage: 100 MG/ML
     Route: 065
     Dates: start: 201404

REACTIONS (1)
  - Ischaemic stroke [Recovering/Resolving]

NARRATIVE: CASE EVENT DATE: 20150511
